FAERS Safety Report 5669874-0 (Version None)
Quarter: 2008Q1

REPORT INFORMATION
  Report Type: 
  Country: None (occurrence: None)
  Receive Date: 20080317
  Receipt Date: 20080305
  Transmission Date: 20080703
  Serious: Yes (Hospitalization, Other)
  Sender: FDA-Public Use
  Company Number: FR-PFIZER INC-2008021248

PATIENT
  Age: 81 Year
  Sex: Male

DRUGS (2)
  1. LYRICA [Suspect]
     Indication: HERPES ZOSTER OPHTHALMIC
  2. MORPHINE [Concomitant]

REACTIONS (3)
  - HALLUCINATION [None]
  - MOOD ALTERED [None]
  - SLEEP DISORDER [None]
